FAERS Safety Report 7704934-1 (Version None)
Quarter: 2011Q3

REPORT INFORMATION
  Report Type: 
  Country: None (occurrence: None)
  Receive Date: 20110823
  Receipt Date: 20110821
  Transmission Date: 20111222
  Serious: No
  Sender: FDA-Public Use
  Company Number: US-PFIZER INC-2011193273

PATIENT
  Sex: Female

DRUGS (2)
  1. LIPITOR [Suspect]
     Dosage: 80 MG, UNK
  2. LIPITOR [Suspect]
     Dosage: UNK

REACTIONS (3)
  - PAIN [None]
  - TENDERNESS [None]
  - MYALGIA [None]
